FAERS Safety Report 8792236 (Version 1)
Quarter: 2012Q4

REPORT INFORMATION
  Report Type: 
  Country: US (occurrence: US)
  Receive Date: 20120918
  Receipt Date: 20120918
  Transmission Date: 20130627
  Serious: No
  Sender: FDA-Public Use
  Company Number: US-VERTEX PHARMACEUTICAL INC.-AE-2012-008727

PATIENT
  Age: 38 Year
  Sex: Female
  Weight: 72 kg

DRUGS (6)
  1. INCIVEK [Suspect]
     Indication: HEPATITIS C
     Dosage: 750 mg, tid
     Route: 048
     Dates: start: 20120609, end: 20120905
  2. RIBAVIRIN [Concomitant]
     Indication: HEPATITIS C
     Dosage: 200 mg, UNK
     Route: 048
     Dates: start: 20120609
  3. PEGINTRON                          /01543001/ [Suspect]
     Indication: HEPATITIS C
     Dosage: 150 rp
     Route: 058
     Dates: start: 20120608
  4. SYNTHROID [Concomitant]
     Indication: HYPOTHYROIDISM
     Dosage: 100 ?g, UNK
     Route: 048
  5. TOPAMAX [Concomitant]
     Indication: MIGRAINE
     Dosage: 100 mg, UNK
     Route: 048
  6. IBU [Concomitant]
     Dosage: 600 mg, UNK

REACTIONS (22)
  - Dizziness [Not Recovered/Not Resolved]
  - Arthralgia [Unknown]
  - Headache [Not Recovered/Not Resolved]
  - Back pain [Unknown]
  - Decreased appetite [Unknown]
  - Weight decreased [Unknown]
  - Injection site bruising [Unknown]
  - Injection site erythema [None]
  - Gingival bleeding [Unknown]
  - Chills [Unknown]
  - Alopecia [Unknown]
  - Abdominal distension [Unknown]
  - Dry mouth [Unknown]
  - Dry skin [Unknown]
  - Oral candidiasis [Unknown]
  - Fatigue [Unknown]
  - Rash [Not Recovered/Not Resolved]
  - Haemoglobin decreased [Unknown]
  - Anal pruritus [Unknown]
  - Dysgeusia [Unknown]
  - Vomiting [Not Recovered/Not Resolved]
  - Nausea [Not Recovered/Not Resolved]
